FAERS Safety Report 25952156 (Version 1)
Quarter: 2025Q4

REPORT INFORMATION
  Report Type: Spontaneous
  Country: EU (occurrence: EU)
  Receive Date: 20251023
  Receipt Date: 20251023
  Transmission Date: 20260118
  Serious: Yes (Other)
  Sender: TEVA
  Company Number: EU-TEVA-VS-3382913

PATIENT
  Age: 70 Year
  Sex: Female

DRUGS (6)
  1. ESCITALOPRAM [Suspect]
     Active Substance: ESCITALOPRAM OXALATE
     Indication: Depression
     Dosage: USING FOR 23 YEARS, RATIOPHARM
     Route: 048
     Dates: end: 202508
  2. ESCITALOPRAM [Suspect]
     Active Substance: ESCITALOPRAM OXALATE
     Indication: Depression
     Dosage: RATIOPHARM
     Route: 048
     Dates: start: 202508, end: 202509
  3. METFORMIN [Concomitant]
     Active Substance: METFORMIN HYDROCHLORIDE
     Indication: Diabetes mellitus
  4. Jatrosom [Concomitant]
     Indication: Product used for unknown indication
  5. EUTHYROX [Concomitant]
     Active Substance: LEVOTHYROXINE SODIUM
     Indication: Thyroid disorder
     Dosage: 50
  6. ATORVASTATIN [Concomitant]
     Active Substance: ATORVASTATIN
     Indication: Lipid metabolism disorder

REACTIONS (7)
  - Dizziness [Unknown]
  - Withdrawal syndrome [Unknown]
  - Malaise [Unknown]
  - Peripheral coldness [Unknown]
  - Confusional state [Unknown]
  - Gait disturbance [Unknown]
  - Memory impairment [Recovering/Resolving]

NARRATIVE: CASE EVENT DATE: 20230101
